FAERS Safety Report 19391176 (Version 1)
Quarter: 2021Q2

REPORT INFORMATION
  Report Type: Spontaneous
  Country: AR (occurrence: AR)
  Receive Date: 20210608
  Receipt Date: 20210608
  Transmission Date: 20210717
  Serious: Yes (Other)
  Sender: FDA-Public Use
  Company Number: AR-MYLANLABS-2021M1022137

PATIENT
  Age: 60 Year
  Sex: Female

DRUGS (8)
  1. ASPIRIN                            /00002701/ [Concomitant]
     Active Substance: ASPIRIN
     Dosage: UNK
  2. LAPENAX [Suspect]
     Active Substance: CLOZAPINE
     Indication: SCHIZOPHRENIA
     Dosage: UNK
     Dates: start: 201905
  3. LAPENAX [Suspect]
     Active Substance: CLOZAPINE
     Indication: DELUSION
     Dosage: 150 MILLIGRAM, QD
  4. VALCOTE                            /00228501/ [Concomitant]
     Dosage: 500 MILLIGRAM, TID
  5. IRON [Concomitant]
     Active Substance: IRON
     Dosage: UNK
  6. LAPENAX [Suspect]
     Active Substance: CLOZAPINE
     Indication: HALLUCINATION
  7. LORAZEPAM. [Concomitant]
     Active Substance: LORAZEPAM
     Dosage: 2 MILLIGRAM, TID
  8. OMEPRAZOLE. [Concomitant]
     Active Substance: OMEPRAZOLE
     Dosage: UNK

REACTIONS (4)
  - Neutropenia [Recovered/Resolved]
  - Neutrophil count increased [Unknown]
  - Urinary tract infection [Unknown]
  - Leukocytosis [Unknown]

NARRATIVE: CASE EVENT DATE: 20210408
